FAERS Safety Report 7700623-8 (Version None)
Quarter: 2011Q3

REPORT INFORMATION
  Report Type: 
  Country: None (occurrence: None)
  Receive Date: 20110822
  Receipt Date: 20110822
  Transmission Date: 20111222
  Serious: Yes (Hospitalization, Other)
  Sender: FDA-Public Use
  Company Number: None

PATIENT
  Sex: Female
  Weight: 53.523 kg

DRUGS (1)
  1. SYNTHROID [Suspect]
     Indication: HYPOTHYROIDISM
     Dosage: 88MCG
     Route: 048
     Dates: start: 20110617, end: 20110621

REACTIONS (10)
  - MUSCULOSKELETAL PAIN [None]
  - WEIGHT INCREASED [None]
  - NECK PAIN [None]
  - ABDOMINAL DISTENSION [None]
  - DYSSTASIA [None]
  - ARTHRALGIA [None]
  - MYALGIA [None]
  - GROIN PAIN [None]
  - PRODUCT SUBSTITUTION ISSUE [None]
  - ABASIA [None]
